FAERS Safety Report 17545891 (Version 2)
Quarter: 2020Q2

REPORT INFORMATION
  Report Type: Spontaneous
  Country: US (occurrence: US)
  Receive Date: 20200316
  Receipt Date: 20200417
  Transmission Date: 20200713
  Serious: No
  Sender: FDA-Public Use
  Company Number: US-BAYER-2020-044753

PATIENT
  Age: 21 Year
  Sex: Female
  Weight: 68.93 kg

DRUGS (6)
  1. DOXYCYCLINE HYCLATE. [Concomitant]
     Active Substance: DOXYCYCLINE HYCLATE
     Dosage: UNK
     Dates: start: 20200209
  2. FLECAINIDE [Concomitant]
     Active Substance: FLECAINIDE
     Dosage: UNK
     Dates: start: 20190717
  3. FLAGYL [Concomitant]
     Active Substance: METRONIDAZOLE\METRONIDAZOLE HYDROCHLORIDE
     Dosage: 1 DF, BID
     Route: 048
     Dates: start: 20200221
  4. MIRENA [Suspect]
     Active Substance: LEVONORGESTREL
     Indication: INTRA-UTERINE CONTRACEPTIVE DEVICE INSERTION
     Dosage: 20 ?G PER DAY CONTINUOUSLY
     Route: 015
     Dates: start: 20190724, end: 20200305
  5. DIFLUCAN [Concomitant]
     Active Substance: FLUCONAZOLE
     Dosage: 1 DF, QD
     Route: 048
     Dates: start: 20200217
  6. PREDNISONE. [Concomitant]
     Active Substance: PREDNISONE
     Dosage: UNK
     Dates: start: 20200209

REACTIONS (4)
  - Abdominal pain lower [None]
  - Device expulsion [Recovered/Resolved]
  - Hypomenorrhoea [Recovered/Resolved]
  - Menometrorrhagia [None]

NARRATIVE: CASE EVENT DATE: 20190724
